FAERS Safety Report 18979519 (Version 1)
Quarter: 2021Q1

REPORT INFORMATION
  Report Type: Spontaneous
  Country: US (occurrence: US)
  Receive Date: 20210308
  Receipt Date: 20210308
  Transmission Date: 20210420
  Serious: No
  Sender: FDA-Public Use
  Company Number: US-SA-2021SA076760

PATIENT
  Sex: Male
  Weight: 50.8 kg

DRUGS (7)
  1. SODIUM CHLORIDE. [Concomitant]
     Active Substance: SODIUM CHLORIDE
  2. CEREZYME [Suspect]
     Active Substance: IMIGLUCERASE
     Indication: TYPE V HYPERLIPIDAEMIA
     Dosage: 2400 U, QOW
     Dates: start: 20050117
  3. SOLU?CORTEF [Concomitant]
     Active Substance: HYDROCORTISONE SODIUM SUCCINATE
  4. EPINEPHRINE. [Concomitant]
     Active Substance: EPINEPHRINE
  5. DIPHENHYDRAMINE. [Concomitant]
     Active Substance: DIPHENHYDRAMINE
  6. STERILE WATER [Concomitant]
     Active Substance: WATER
  7. LMX4 [Concomitant]
     Active Substance: LIDOCAINE

REACTIONS (1)
  - Chills [Unknown]
